FAERS Safety Report 7321678-9 (Version None)
Quarter: 2011Q1

REPORT INFORMATION
  Report Type: 
  Country: None (occurrence: None)
  Receive Date: 20110228
  Receipt Date: 20100802
  Transmission Date: 20110831
  Serious: No
  Sender: FDA-Public Use
  Company Number: US-PFIZER INC-2010092134

PATIENT
  Sex: Female
  Weight: 82 kg

DRUGS (12)
  1. GEODON [Suspect]
     Dosage: 40 MG, DAILY
     Route: 048
     Dates: start: 20100714
  2. DILAUDID [Concomitant]
     Dosage: UNK
  3. PROBUCOL [Concomitant]
     Dosage: UNK
  4. UNIPHYL [Concomitant]
     Dosage: UNK
  5. LEXAPRO [Concomitant]
     Dosage: UNK
  6. PREVACID [Concomitant]
     Dosage: UNK
  7. CLONIDINE [Concomitant]
     Dosage: UNK
  8. VALIUM [Concomitant]
     Dosage: UNK
  9. CYCLOBENZAPRINE [Concomitant]
     Dosage: UNK
  10. AMITIZA [Concomitant]
     Dosage: UNK
  11. MORPHINE [Concomitant]
     Dosage: UNK
  12. SYNTHROID [Concomitant]
     Dosage: UNK

REACTIONS (1)
  - ABDOMINAL PAIN UPPER [None]
